FAERS Safety Report 7057714-7 (Version None)
Quarter: 2010Q4

REPORT INFORMATION
  Report Type: 
  Country: None (occurrence: None)
  Receive Date: 20101022
  Receipt Date: 20101014
  Transmission Date: 20110411
  Serious: Yes (Life-Threatening, Hospitalization)
  Sender: FDA-Public Use
  Company Number: ES-PFIZER INC-2008018314

PATIENT
  Age: 27 Year
  Sex: Female

DRUGS (1)
  1. PREPIDIL [Suspect]
     Indication: INDUCED LABOUR
     Dosage: DAILY
     Dates: start: 19991205, end: 19991205

REACTIONS (3)
  - DISSEMINATED INTRAVASCULAR COAGULATION [None]
  - DYSPNOEA [None]
  - MALAISE [None]
